FAERS Safety Report 9596485 (Version 1)
Quarter: 2013Q4

REPORT INFORMATION
  Report Type: Spontaneous
  Country: US (occurrence: US)
  Receive Date: 20131004
  Receipt Date: 20131004
  Transmission Date: 20140711
  Serious: Yes (Hospitalization, Other)
  Sender: FDA-Public Use
  Company Number: US-PFIZER INC-2013282199

PATIENT
  Age: 53 Year
  Sex: Female
  Weight: 68.03 kg

DRUGS (4)
  1. EFFEXOR XR [Suspect]
     Indication: DEPRESSION
     Dosage: 150 MG, UNK
     Dates: start: 2005
  2. EFFEXOR XR [Suspect]
     Dosage: 37.5 MG, UNK
  3. LAMICTAL [Suspect]
     Indication: DEPRESSION
     Dosage: UNK
  4. LAMICTAL [Suspect]
     Indication: AFFECTIVE DISORDER

REACTIONS (1)
  - Suicidal ideation [Unknown]
